FAERS Safety Report 4999179-2 (Version None)
Quarter: 2006Q2

REPORT INFORMATION
  Report Type: 
  Country: None (occurrence: None)
  Receive Date: 20060511
  Receipt Date: 20060509
  Transmission Date: 20061013
  Serious: Yes (Life-Threatening)
  Sender: FDA-Public Use
  Company Number: PHRM2006FR01499

PATIENT
  Age: 60 Year
  Sex: Female

DRUGS (4)
  1. EZETROL [Suspect]
     Indication: HYPERCHOLESTEROLAEMIA
     Dosage: 10 MG, QD
     Route: 048
     Dates: start: 20060110, end: 20060201
  2. APAROXAL [Suspect]
     Route: 048
  3. ZOCOR [Concomitant]
     Indication: HYPERCHOLESTEROLAEMIA
  4. TEGRETOL [Suspect]
     Indication: EPILEPSY
     Dosage: UNK, UNK
     Route: 048

REACTIONS (2)
  - CONVULSION [None]
  - DRUG INTERACTION [None]
